FAERS Safety Report 8899856 (Version 1)
Quarter: 2012Q4

REPORT INFORMATION
  Report Type: 
  Country: CZ (occurrence: CZ)
  Receive Date: 20121109
  Receipt Date: 20121109
  Transmission Date: 20130627
  Serious: Yes (Hospitalization)
  Sender: FDA-Public Use
  Company Number: PHHY2012CZ102266

PATIENT
  Age: 69 Year
  Sex: Male

DRUGS (1)
  1. ONBREZ [Suspect]
     Indication: CHRONIC OBSTRUCTIVE PULMONARY DISEASE
     Dosage: 150 ug, UNK
     Dates: start: 20120824

REACTIONS (5)
  - Ejection fraction decreased [Recovered/Resolved]
  - Cardiac disorder [Recovered/Resolved]
  - Atrial flutter [Recovered/Resolved]
  - Tachyarrhythmia [Recovered/Resolved]
  - Nausea [Recovered/Resolved]
